FAERS Safety Report 9846021 (Version 2)
Quarter: 2014Q1

REPORT INFORMATION
  Report Type: Spontaneous
  Country: US (occurrence: US)
  Receive Date: 20140127
  Receipt Date: 20140206
  Transmission Date: 20141002
  Serious: Yes (Other)
  Sender: FDA-Public Use
  Company Number: US-RB-062429-14

PATIENT
  Age: 46 Year
  Sex: Female

DRUGS (2)
  1. DELSYM ADULT ORANGE LIQUID [Suspect]
     Indication: COUGH
     Dosage: LAST TOOK ON 19-JAN-2014
     Route: 048
     Dates: start: 20140119
  2. ANTIBIOTIC [Concomitant]
     Indication: BRONCHITIS

REACTIONS (4)
  - Paranoia [Recovered/Resolved]
  - Chills [Recovered/Resolved]
  - Diarrhoea [Recovered/Resolved]
  - Dizziness [Recovered/Resolved]
